FAERS Safety Report 5252894-8 (Version None)
Quarter: 2007Q1

REPORT INFORMATION
  Report Type: 
  Country: None (occurrence: None)
  Receive Date: 20070227
  Receipt Date: 20070214
  Transmission Date: 20070707
  Serious: Yes (Death, Life-Threatening, Hospitalization)
  Sender: FDA-Public Use
  Company Number: ST-2006-009438

PATIENT
  Age: 71 Year
  Sex: Male
  Weight: 56 kg

DRUGS (8)
  1. OLEMTEC [Suspect]
     Indication: HYPERTENSION
     Dosage: 20 MG QD PO
     Route: 048
     Dates: start: 20060209, end: 20061205
  2. MOBIC [Concomitant]
  3. FASTIC [Concomitant]
  4. LIPIDIL [Concomitant]
  5. AZULEN [Concomitant]
  6. LASIX [Concomitant]
  7. ARTIST [Concomitant]
  8. CALBLOCK [Concomitant]

REACTIONS (2)
  - FUNGAL INFECTION [None]
  - INTERSTITIAL LUNG DISEASE [None]
